FAERS Safety Report 17313659 (Version 1)
Quarter: 2020Q1

REPORT INFORMATION
  Report Type: Spontaneous
  Country: US (occurrence: US)
  Receive Date: 20200107
  Receipt Date: 20200107
  Transmission Date: 20200409
  Serious: Yes (Hospitalization, Other)
  Sender: FDA-Public Use
  Company Number: None

PATIENT
  Sex: Female

DRUGS (9)
  1. CALCIUM [Concomitant]
     Active Substance: CALCIUM
  2. KEPPRA [Concomitant]
     Active Substance: LEVETIRACETAM
  3. LOTEMAX [Concomitant]
     Active Substance: LOTEPREDNOL ETABONATE
  4. LETROZOLE. [Concomitant]
     Active Substance: LETROZOLE
  5. VERZENIO [Suspect]
     Active Substance: ABEMACICLIB
     Indication: BREAST CANCER FEMALE
     Route: 048
     Dates: start: 20190503
  6. VIT D [Concomitant]
     Active Substance: VITAMIN D NOS
  7. DEXAMETHASONE. [Concomitant]
     Active Substance: DEXAMETHASONE
  8. MELOXICAM. [Concomitant]
     Active Substance: MELOXICAM
  9. TEAMZEPAM [Concomitant]

REACTIONS (1)
  - Malignant neoplasm progression [None]
